FAERS Safety Report 17343384 (Version 1)
Quarter: 2020Q1

REPORT INFORMATION
  Report Type: Spontaneous
  Country: NL (occurrence: NL)
  Receive Date: 20200129
  Receipt Date: 20200129
  Transmission Date: 20200409
  Serious: Yes (Other)
  Sender: FDA-Public Use
  Company Number: NL-SA-2020SA021790

PATIENT
  Age: 63 Year
  Sex: Female
  Weight: 72 kg

DRUGS (15)
  1. DUPIXENT [Suspect]
     Active Substance: DUPILUMAB
     Indication: ASTHMA
     Dosage: 300 MG, QOW
     Dates: start: 20190911
  2. ALVESCO [Concomitant]
     Active Substance: CICLESONIDE
  3. FOSTER [Concomitant]
     Active Substance: BECLOMETHASONE\FORMOTEROL
  4. CALCIUM CARBONATE W/VITAMIN D [CALCIUM CARBONATE;COLECALCIFEROL] [Concomitant]
     Active Substance: CALCIUM CARBONATE\CHOLECALCIFEROL
  5. TEMAZEPAM. [Concomitant]
     Active Substance: TEMAZEPAM
  6. SALBUTAMOL [Concomitant]
     Active Substance: ALBUTEROL
  7. ATROVENT [Concomitant]
     Active Substance: IPRATROPIUM BROMIDE
  8. IPRAMOL [Concomitant]
     Active Substance: ALBUTEROL SULFATE\IPRATROPIUM BROMIDE
  9. FLUIMUCIL [Concomitant]
     Active Substance: ACETYLCYSTEINE
  10. TRAMADOL. [Concomitant]
     Active Substance: TRAMADOL
  11. FLUTICASONE. [Concomitant]
     Active Substance: FLUTICASONE
  12. RISEDRONIC ACID [Concomitant]
     Active Substance: RISEDRONIC ACID
  13. PREDNISONE. [Concomitant]
     Active Substance: PREDNISONE
  14. ONBREZ [Concomitant]
     Active Substance: INDACATEROL
  15. MOMETASONE [Concomitant]
     Active Substance: MOMETASONE

REACTIONS (1)
  - Transient ischaemic attack [Recovering/Resolving]

NARRATIVE: CASE EVENT DATE: 20191231
